FAERS Safety Report 9369786 (Version 1)
Quarter: 2013Q2

REPORT INFORMATION
  Report Type: Spontaneous
  Country: ES (occurrence: ES)
  Receive Date: 20130626
  Receipt Date: 20130626
  Transmission Date: 20140414
  Serious: Yes (Hospitalization)
  Sender: FDA-Public Use
  Company Number: ES-PFIZER INC-2013185999

PATIENT
  Age: 88 Year
  Sex: Male

DRUGS (1)
  1. SUTENT [Suspect]
     Indication: GASTRIC CANCER
     Dosage: UNK
     Route: 048
     Dates: start: 201003, end: 20120530

REACTIONS (2)
  - Hypertensive emergency [Recovered/Resolved]
  - Renal failure chronic [Recovered/Resolved]
